FAERS Safety Report 5057567-2 (Version None)
Quarter: 2006Q3

REPORT INFORMATION
  Report Type: 
  Country: None (occurrence: None)
  Receive Date: 20060721
  Receipt Date: 20051129
  Transmission Date: 20061208
  Serious: No
  Sender: FDA-Public Use
  Company Number: US-GLAXOSMITHKLINE-A0583842A

PATIENT
  Age: 66 Year
  Sex: Female

DRUGS (11)
  1. AVANDIA [Suspect]
     Dosage: 8MG PER DAY
     Route: 048
     Dates: start: 20051020
  2. DONATUSSIN [Concomitant]
  3. GLIPIZIDE [Concomitant]
  4. ATENOLOL [Concomitant]
  5. METFORMIN [Concomitant]
  6. DICLOFENAC [Concomitant]
  7. COZAAR [Concomitant]
  8. LOVASTATIN [Concomitant]
  9. DITROPAN XL [Concomitant]
  10. NORTRIPTYLINE HCL [Concomitant]
  11. HYDROCODONE BITARTRATE + ACETAMINOPHEN [Concomitant]

REACTIONS (3)
  - CHEST PAIN [None]
  - COUGH [None]
  - PAIN IN EXTREMITY [None]
